FAERS Safety Report 8743000 (Version 3)
Quarter: 2012Q4

REPORT INFORMATION
  Report Type: 
  Country: JP (occurrence: JP)
  Receive Date: 20120824
  Receipt Date: 20121101
  Transmission Date: 20130627
  Serious: Yes (Other)
  Sender: FDA-Public Use
  Company Number: JP-ASTRAZENECA-2012SE57758

PATIENT

DRUGS (1)
  1. MARCAIN SPINAL [Suspect]
     Indication: SPINAL ANAESTHESIA
     Route: 037

REACTIONS (2)
  - Cauda equina syndrome [Unknown]
  - Psychosomatic disease [Unknown]
